FAERS Safety Report 6165941-6 (Version None)
Quarter: 2009Q2

REPORT INFORMATION
  Report Type: 
  Country: None (occurrence: None)
  Receive Date: 20090422
  Receipt Date: 20090409
  Transmission Date: 20091009
  Serious: Yes (Hospitalization)
  Sender: FDA-Public Use
  Company Number: 233944K09USA

PATIENT
  Age: 51 Year
  Sex: Female
  Weight: 70 kg

DRUGS (5)
  1. REBIF [Suspect]
     Indication: MULTIPLE SCLEROSIS
     Dosage: 22 MCG, 3 IN 1 WEEKS, SUBCUTANEOUS
     Route: 058
     Dates: start: 20090323, end: 20090401
  2. REBIF [Suspect]
     Indication: MULTIPLE SCLEROSIS
     Dosage: 22 MCG, 3 IN 1 WEEKS, SUBCUTANEOUS
     Route: 058
     Dates: start: 20090406
  3. NEXIUM [Concomitant]
  4. LITHIUM CARBONATE [Concomitant]
  5. DESIPRAMINE HCL [Concomitant]

REACTIONS (2)
  - CHEST PAIN [None]
  - INFLUENZA LIKE ILLNESS [None]
